FAERS Safety Report 18660796 (Version 1)
Quarter: 2020Q4

REPORT INFORMATION
  Report Type: Spontaneous
  Country: CN (occurrence: CN)
  Receive Date: 20201224
  Receipt Date: 20201224
  Transmission Date: 20210114
  Serious: Yes (Other)
  Sender: FDA-Public Use
  Company Number: CN-ELI_LILLY_AND_COMPANY-CN202012011341

PATIENT
  Sex: Male

DRUGS (1)
  1. CYMBALTA [Suspect]
     Active Substance: DULOXETINE HYDROCHLORIDE
     Indication: ANXIETY
     Dosage: 60 U, DAILY
     Route: 065
     Dates: start: 20201209, end: 20201215

REACTIONS (6)
  - Abdominal distension [Recovering/Resolving]
  - Urinary retention [Recovered/Resolved]
  - Constipation [Recovering/Resolving]
  - Dyschezia [Unknown]
  - Abdominal pain [Recovered/Resolved]
  - Benign prostatic hyperplasia [Recovering/Resolving]
